FAERS Safety Report 8849825 (Version 1)
Quarter: 2012Q4

REPORT INFORMATION
  Report Type: 
  Country: US (occurrence: US)
  Receive Date: 20121019
  Receipt Date: 20121019
  Transmission Date: 20130627
  Serious: Yes (Other)
  Sender: FDA-Public Use
  Company Number: US-ELI_LILLY_AND_COMPANY-US201203006156

PATIENT
  Age: 32 None
  Sex: Female
  Weight: 92.52 kg

DRUGS (4)
  1. HUMALOG LISPRO [Suspect]
     Indication: TYPE 2 DIABETES MELLITUS
     Dosage: 17 u, each morning
     Route: 058
     Dates: start: 20120109, end: 20120803
  2. HUMALOG LISPRO [Suspect]
     Dosage: 17 u, other
     Route: 058
     Dates: start: 20120109, end: 20120803
  3. HUMALOG LISPRO [Suspect]
     Dosage: 19 u, each evening
     Route: 058
     Dates: start: 20120109, end: 20120803
  4. LEVEMIR [Concomitant]

REACTIONS (3)
  - Caesarean section [Recovered/Resolved]
  - Exposure during pregnancy [Recovered/Resolved]
  - Incorrect dose administered [Recovered/Resolved]
